FAERS Safety Report 8565479-2 (Version None)
Quarter: 2012Q3

REPORT INFORMATION
  Report Type: 
  Country: None (occurrence: None)
  Receive Date: 20120803
  Receipt Date: 20120728
  Transmission Date: 20120928
  Serious: Yes (Hospitalization)
  Sender: FDA-Public Use
  Company Number: US-ABBOTT-12P-163-0938292-00

PATIENT
  Age: 60 Year
  Sex: Female

DRUGS (10)
  1. AFRIN [Concomitant]
     Indication: SEASONAL ALLERGY
  2. ACTIVELLA [Concomitant]
     Indication: HORMONE REPLACEMENT THERAPY
     Dosage: DAILY
  3. FLURAZEPAM [Concomitant]
     Indication: INSOMNIA
     Route: 048
  4. HUMIRA [Suspect]
     Indication: CROHN'S DISEASE
     Dates: end: 20120601
  5. CARAFATE [Concomitant]
     Indication: PRODUCT USED FOR UNKNOWN INDICATION
     Route: 048
  6. CRESTOR [Concomitant]
     Indication: PRODUCT USED FOR UNKNOWN INDICATION
     Dosage: 20 MG DAILY
     Route: 048
  7. NIZATIDINE [Concomitant]
     Indication: GASTROOESOPHAGEAL REFLUX DISEASE
     Route: 048
  8. VAGIFEM [Concomitant]
     Indication: PRODUCT USED FOR UNKNOWN INDICATION
     Route: 067
  9. XANAX [Concomitant]
     Indication: ANXIETY
  10. MOTIFENE [Concomitant]
     Indication: PRODUCT USED FOR UNKNOWN INDICATION

REACTIONS (15)
  - PNEUMONIA [None]
  - INJECTION SITE VESICLES [None]
  - VAGINAL FISTULA [None]
  - GASTRITIS HAEMORRHAGIC [None]
  - CHILLS [None]
  - DELIRIUM [None]
  - BLOOD CHOLESTEROL INCREASED [None]
  - SOMNOLENCE [None]
  - INJECTION SITE SCAR [None]
  - INCORRECT DOSE ADMINISTERED [None]
  - CONFUSIONAL STATE [None]
  - DYSPNOEA [None]
  - PYREXIA [None]
  - ABDOMINAL DISCOMFORT [None]
  - DEVICE MALFUNCTION [None]
